FAERS Safety Report 9792895 (Version 1)
Quarter: 2014Q1

REPORT INFORMATION
  Report Type: Spontaneous
  Country: US (occurrence: US)
  Receive Date: 20140102
  Receipt Date: 20140102
  Transmission Date: 20141002
  Serious: No
  Sender: FDA-Public Use
  Company Number: US-SA-2013SA118617

PATIENT
  Age: 42 Year
  Sex: Female

DRUGS (8)
  1. AUBAGIO [Suspect]
     Indication: MULTIPLE SCLEROSIS
     Route: 048
     Dates: start: 20131106
  2. TOPAMAX [Concomitant]
  3. MEGESTROL ACETATE [Concomitant]
  4. VERAPAMIL HYDROCHLORIDE [Concomitant]
  5. XANAX [Concomitant]
  6. TRAZODONE HYDROCHLORIDE [Concomitant]
  7. LORTAB [Concomitant]
  8. PERCOCET [Concomitant]

REACTIONS (1)
  - Asthenia [Unknown]
